FAERS Safety Report 10736140 (Version 2)
Quarter: 2015Q1

REPORT INFORMATION
  Report Type: Spontaneous
  Country: CH (occurrence: CH)
  Receive Date: 20150126
  Receipt Date: 20150223
  Transmission Date: 20150721
  Serious: Yes (Other)
  Sender: FDA-Public Use
  Company Number: CH-JNJFOC-20150113525

PATIENT
  Age: 66 Year
  Sex: Male
  Weight: 69 kg

DRUGS (3)
  1. XARELTO [Suspect]
     Active Substance: RIVAROXABAN
     Indication: THROMBOSIS PROPHYLAXIS
     Route: 048
     Dates: start: 20141119, end: 20141124
  2. RUDOLAC [Concomitant]
     Indication: CONSTIPATION
     Route: 048
     Dates: start: 20141125
  3. IRBESARTAN. [Suspect]
     Active Substance: IRBESARTAN
     Indication: HYPERTENSION
     Route: 048
     Dates: start: 201311

REACTIONS (3)
  - Abdominal pain upper [Recovered/Resolved]
  - Mixed liver injury [Recovering/Resolving]
  - Nausea [Recovered/Resolved]

NARRATIVE: CASE EVENT DATE: 20141124
